FAERS Safety Report 8100769-9 (Version None)
Quarter: 2012Q1

REPORT INFORMATION
  Report Type: 
  Country: None (occurrence: None)
  Receive Date: 20120129
  Receipt Date: 20111031
  Transmission Date: 20120608
  Serious: Yes (Hospitalization)
  Sender: FDA-Public Use
  Company Number: US-ABBOTT-11P-163-0864217-00

PATIENT
  Sex: Female
  Weight: 64.014 kg

DRUGS (7)
  1. HUMIRA [Suspect]
     Indication: PSORIASIS
     Dates: start: 20101101, end: 20111001
  2. LEXAPRO [Concomitant]
     Indication: ANXIETY
     Dosage: 20 MG DAILY
  3. RANITIDINE [Concomitant]
     Indication: PROPHYLAXIS
  4. BENICAR [Concomitant]
     Indication: HYPERTENSION
     Dosage: 20 MG DAILY
  5. VYTORIN [Concomitant]
     Indication: PRODUCT USED FOR UNKNOWN INDICATION
     Dosage: 10/20
  6. METFORMIN HCL [Concomitant]
     Indication: DIABETES MELLITUS
     Dosage: 500 MG DAILY
     Dates: start: 20060101
  7. RANITIDINE [Concomitant]
     Indication: GASTRIC DISORDER
     Dosage: 150 MG DAILY

REACTIONS (1)
  - ATRIAL FIBRILLATION [None]
